FAERS Safety Report 17864361 (Version 1)
Quarter: 2020Q2

REPORT INFORMATION
  Report Type: Spontaneous
  Country: US (occurrence: US)
  Receive Date: 20200604
  Receipt Date: 20200604
  Transmission Date: 20200714
  Serious: Yes (Hospitalization)
  Sender: FDA-Public Use
  Company Number: None

PATIENT
  Sex: Female

DRUGS (10)
  1. PREVYMIS [Suspect]
     Active Substance: LETERMOVIR
     Indication: MYELODYSPLASTIC SYNDROME
     Route: 048
     Dates: start: 20200513
  2. VITAMIN D [Concomitant]
     Active Substance: VITAMIN D NOS
  3. URSODIOL. [Concomitant]
     Active Substance: URSODIOL
  4. DAPSONE. [Concomitant]
     Active Substance: DAPSONE
  5. CITALOPRAM [Concomitant]
     Active Substance: CITALOPRAM HYDROBROMIDE
  6. CLONAZEPAM. [Concomitant]
     Active Substance: CLONAZEPAM
  7. PROMETHAZINE [Concomitant]
     Active Substance: PROMETHAZINE HYDROCHLORIDE
  8. ESTRADIOL. [Concomitant]
     Active Substance: ESTRADIOL
  9. SIMVASTATIN. [Concomitant]
     Active Substance: SIMVASTATIN
  10. BUDESONIDE. [Concomitant]
     Active Substance: BUDESONIDE

REACTIONS (1)
  - Bone marrow transplant [None]
